FAERS Safety Report 8925670 (Version 1)
Quarter: 2012Q4

REPORT INFORMATION
  Report Type: Report from Study
  Country: DE (occurrence: DE)
  Receive Date: 20121126
  Receipt Date: 20121126
  Transmission Date: 20130627
  Serious: Yes (Death)
  Sender: FDA-Public Use
  Company Number: DE-ROCHE-1159659

PATIENT
  Sex: Female
  Weight: 64 kg

DRUGS (1)
  1. BEVACIZUMAB [Suspect]
     Indication: COLON CANCER METASTATIC
     Route: 042
     Dates: start: 20111201, end: 20121024

REACTIONS (3)
  - Peritonitis [Fatal]
  - Subileus [Fatal]
  - Metastases to peritoneum [Fatal]
